FAERS Safety Report 5669345-1 (Version None)
Quarter: 2008Q1

REPORT INFORMATION
  Report Type: 
  Country: None (occurrence: None)
  Receive Date: 20080317
  Receipt Date: 20080306
  Transmission Date: 20080703
  Serious: Yes (Other)
  Sender: FDA-Public Use
  Company Number: PHHY2008AU02601

PATIENT
  Age: 71 Year
  Sex: Male

DRUGS (7)
  1. ZOMETA [Suspect]
     Indication: MULTIPLE MYELOMA
     Route: 042
  2. WARFARIN SODIUM [Concomitant]
  3. LASIX [Concomitant]
  4. THALIDOMIDE [Concomitant]
  5. ALDACTONE [Concomitant]
  6. COVERSYL [Concomitant]
  7. ZYLOPRIM [Concomitant]

REACTIONS (5)
  - BONE DISORDER [None]
  - BONE LESION [None]
  - OSTEOMYELITIS [None]
  - OSTEONECROSIS [None]
  - SEQUESTRECTOMY [None]
